FAERS Safety Report 16669054 (Version 1)
Quarter: 2019Q3

REPORT INFORMATION
  Report Type: Spontaneous
  Country: US (occurrence: US)
  Receive Date: 20190805
  Receipt Date: 20190805
  Transmission Date: 20191004
  Serious: No
  Sender: FDA-Public Use
  Company Number: None

PATIENT
  Age: 50 Year
  Sex: Female

DRUGS (7)
  1. GAMMAPLEX [Suspect]
     Active Substance: HUMAN IMMUNOGLOBULIN G
     Indication: PRODUCT USED FOR UNKNOWN INDICATION
     Dosage: ?          OTHER FREQUENCY:EVER 3 WEEKS;?
     Route: 042
  2. FIRST DOSE GAMMAPLEX 10% 30G [Concomitant]
     Dates: start: 20190308, end: 20190308
  3. GAMMAPLEX 10% 30G EVERY 3 WEEKS [Concomitant]
     Dates: start: 20190731, end: 20190731
  4. GAMMAPLEX 10% 30G EVERY 3 WEEKS [Concomitant]
     Dates: start: 20190529, end: 20190529
  5. GAMMAPLEX 10% 30G EVERY 3 WEEKS [Concomitant]
     Dates: start: 20190620, end: 20190620
  6. GAMMAPLEX 10% 30G EVERY 3 WEEKS [Concomitant]
     Dates: start: 20190711, end: 20190711
  7. GAMMAPLEX 10% 30G EVERY 3 WEEKS [Concomitant]
     Dates: start: 20190508, end: 20190508

REACTIONS (2)
  - Arthralgia [None]
  - Alopecia [None]

NARRATIVE: CASE EVENT DATE: 20190801
